FAERS Safety Report 10029803 (Version 1)
Quarter: 2014Q1

REPORT INFORMATION
  Report Type: Spontaneous
  Country: US (occurrence: None)
  Receive Date: 20140320
  Receipt Date: 20140320
  Transmission Date: 20141002
  Serious: Yes (Death)
  Sender: FDA-Public Use
  Company Number: INS201403-000005

PATIENT
  Age: 67 Year
  Sex: Male

DRUGS (1)
  1. SUBSYS [Suspect]

REACTIONS (1)
  - Death [None]
